FAERS Safety Report 16695606 (Version 1)
Quarter: 2019Q3

REPORT INFORMATION
  Report Type: Spontaneous
  Country: US (occurrence: US)
  Receive Date: 20190813
  Receipt Date: 20190813
  Transmission Date: 20191004
  Serious: Yes (Hospitalization, Other)
  Sender: FDA-Public Use
  Company Number: US-TEVA-2019-US-1090536

PATIENT
  Age: 72 Year
  Sex: Male

DRUGS (9)
  1. ASPIRIN. [Suspect]
     Active Substance: ASPIRIN
     Indication: ACUTE MYOCARDIAL INFARCTION
     Dosage: FOR 2 WEEKS
     Route: 065
  2. CLOPIDOGREL [Suspect]
     Active Substance: CLOPIDOGREL BISULFATE
     Dosage: FOR 2 WEEKS
     Route: 065
  3. FEIBA [Suspect]
     Active Substance: ANTI-INHIBITOR COAGULANT COMPLEX
     Indication: FACTOR VIII DEFICIENCY
     Dosage: 75 UNITS; 30 MINUTES BEFORE PCI AND 12 HOURS AFTER THE PREPROCEDURE DOSE
     Route: 065
  4. ASPIRIN. [Suspect]
     Active Substance: ASPIRIN
     Indication: ACUTE MYOCARDIAL INFARCTION
     Dosage: LATER, STARTED AT 22 DAYS AFTER EMICIZUMAB INITIATION
     Route: 065
     Dates: start: 201803
  5. FEIBA [Suspect]
     Active Substance: ANTI-INHIBITOR COAGULANT COMPLEX
     Indication: FACTOR VIII DEFICIENCY
     Dosage: 50 UNITS; 3 TIMES WEEKLY
     Route: 065
     Dates: end: 201803
  6. CLOPIDOGREL [Suspect]
     Active Substance: CLOPIDOGREL BISULFATE
     Indication: ACUTE MYOCARDIAL INFARCTION
     Dosage: LATER, STARTED AT 22 DAYS AFTER EMICIZUMAB INITIATION
     Route: 065
     Dates: start: 201803
  7. HEMLIBRA [Suspect]
     Active Substance: EMICIZUMAB-KXWH
     Indication: FACTOR VIII DEFICIENCY
     Dosage: 3 MG/KG FOR 3 DAYS
     Route: 065
  8. HEMLIBRA [Suspect]
     Active Substance: EMICIZUMAB-KXWH
     Indication: FACTOR VIII DEFICIENCY
     Dosage: 1.5 MG/KG; 28 DAYS AFTER EMICIZUMAB INITIATION
     Route: 065
  9. OBIZUR [Concomitant]
     Active Substance: ANTIHEMOPHILIC FACTOR PORCINE, B-DOMAIN TRUNCATED RECOMBINANT
     Indication: FACTOR VIII DEFICIENCY
     Route: 065

REACTIONS (3)
  - Off label use [Unknown]
  - Haematoma [Recovered/Resolved]
  - Coronary artery disease [Recovered/Resolved]
